FAERS Safety Report 14869199 (Version 8)
Quarter: 2020Q1

REPORT INFORMATION
  Report Type: Report from Study
  Country: UG (occurrence: UG)
  Receive Date: 20180509
  Receipt Date: 20200113
  Transmission Date: 20200409
  Serious: Yes (Congenital Anomaly, Other)
  Sender: FDA-Public Use
  Company Number: UG-VIIV HEALTHCARE LIMITED-UG2018GSK077942

PATIENT
  Sex: Male
  Weight: 2.8 kg

DRUGS (6)
  1. COTRIMOXAZOLE [Concomitant]
     Active Substance: SULFAMETHOXAZOLE\TRIMETHOPRIM
     Dosage: 960 MG, QD
     Dates: start: 20180322
  2. COTRIMOXAZOLE [Concomitant]
     Active Substance: SULFAMETHOXAZOLE\TRIMETHOPRIM
     Dosage: 2.5 ML
     Dates: start: 20190401, end: 20190406
  3. NEVIRAPINE SYRUP [Concomitant]
     Dosage: 1.5 ML, UNK
     Dates: start: 20180430, end: 201806
  4. COTRIMOXAZOLE [Concomitant]
     Active Substance: SULFAMETHOXAZOLE\TRIMETHOPRIM
     Dosage: 120 MG, QD
     Dates: start: 20180618
  5. DOLUTEGRAVIR [Suspect]
     Active Substance: DOLUTEGRAVIR
     Indication: HIV INFECTION
     Dosage: 50 MG, QD
     Route: 064
     Dates: start: 20180322
  6. LAMIVUDINE + TENOFOVIR DISOPROXIL FUMARATE [Concomitant]
     Active Substance: LAMIVUDINE\TENOFOVIR DISOPROXIL FUMARATE
     Indication: HIV INFECTION
     Dosage: UNK
     Dates: start: 20180322

REACTIONS (2)
  - Talipes [Recovered/Resolved]
  - Congenital umbilical hernia [Recovered/Resolved]

NARRATIVE: CASE EVENT DATE: 20180430
